FAERS Safety Report 6787602-2 (Version None)
Quarter: 2010Q2

REPORT INFORMATION
  Report Type: 
  Country: None (occurrence: None)
  Receive Date: 20100623
  Receipt Date: 20070608
  Transmission Date: 20101027
  Serious: No
  Sender: FDA-Public Use
  Company Number: US-PFIZER INC-2007047254

PATIENT
  Sex: Male
  Weight: 78 kg

DRUGS (14)
  1. SUTENT [Suspect]
     Indication: METASTATIC RENAL CELL CARCINOMA
     Dates: start: 20070508, end: 20070607
  2. AMLODIPINE [Concomitant]
     Dates: start: 20041112
  3. SIMVASTATIN [Concomitant]
     Dates: start: 20041112
  4. ACETYLSALICYLIC ACID [Concomitant]
     Dates: start: 20041112
  5. OMEPRAZOLE [Concomitant]
     Dates: start: 20041112
  6. DOCUSATE SODIUM [Concomitant]
     Dates: start: 20041112
  7. METFORMIN HCL [Concomitant]
     Dates: start: 20041112
  8. PROCRIT [Concomitant]
     Dates: start: 20041112
  9. POTASSIUM CHLORIDE [Concomitant]
     Dates: start: 20041112
  10. LASIX [Concomitant]
     Dates: start: 20041112
  11. LORTAB [Concomitant]
     Dates: start: 20041112
  12. ZYRTEC [Concomitant]
     Dates: start: 20041112
  13. FERROUS GLUCONATE [Concomitant]
     Dates: start: 20041112
  14. FENTANYL [Concomitant]
     Dates: start: 20060421

REACTIONS (1)
  - BLOOD CALCIUM DECREASED [None]
